FAERS Safety Report 5531474-0 (Version None)
Quarter: 2007Q4

REPORT INFORMATION
  Report Type: 
  Country: None (occurrence: None)
  Receive Date: 20071203
  Receipt Date: 20071126
  Transmission Date: 20080405
  Serious: Yes (Hospitalization)
  Sender: FDA-Public Use
  Company Number: FR-ELI_LILLY_AND_COMPANY-FR200711005803

PATIENT
  Sex: Female

DRUGS (2)
  1. ZYPREXA [Suspect]
     Dosage: UNK, UNKNOWN
     Route: 048
     Dates: start: 20070625, end: 20070720
  2. TERALITHE [Concomitant]
     Dosage: 3.5 D/F, DAILY (1/D)
     Route: 048

REACTIONS (3)
  - ACCIDENTAL OVERDOSE [None]
  - CATATONIA [None]
  - FALL [None]
